FAERS Safety Report 9324052 (Version 3)
Quarter: 2013Q3

REPORT INFORMATION
  Report Type: Spontaneous
  Country: US (occurrence: US)
  Receive Date: 20130603
  Receipt Date: 20130701
  Transmission Date: 20140515
  Serious: Yes (Death, Other)
  Sender: FDA-Public Use
  Company Number: US-PFIZER INC-2013162075

PATIENT
  Age: 29 Year
  Sex: Male
  Weight: 101.6 kg

DRUGS (6)
  1. METHYLPHENIDATE HYDROCHLORIDE [Suspect]
     Indication: ATTENTION DEFICIT/HYPERACTIVITY DISORDER
     Dosage: 18 MG/DAY
     Route: 065
     Dates: start: 2000
  2. METHYLPHENIDATE HYDROCHLORIDE [Suspect]
     Dosage: 36 MG/DAY 1 WEEK LATER
     Route: 065
  3. SUMATRIPTAN SUCCINATE [Suspect]
     Indication: MIGRAINE
     Dosage: 100 MG, AS NEEDED
     Route: 048
     Dates: start: 200906, end: 201002
  4. ADDERALL [Suspect]
     Indication: ATTENTION DEFICIT/HYPERACTIVITY DISORDER
     Dosage: 30 MG IN THE MORNING AND 25 MG IN THE EVENING
     Route: 065
     Dates: start: 200906
  5. PROPANOLOL [Concomitant]
     Indication: MYALGIA
     Dosage: UNK
  6. ATOMOXETINE [Concomitant]
     Indication: ATTENTION DEFICIT/HYPERACTIVITY DISORDER
     Dosage: UNK
     Route: 065

REACTIONS (6)
  - Coronary artery disease [Fatal]
  - Hyperplasia [Fatal]
  - Coronary artery occlusion [Unknown]
  - Cardiac arrest [Unknown]
  - Pulseless electrical activity [Unknown]
  - Sinus tachycardia [Unknown]
